FAERS Safety Report 10922664 (Version 2)
Quarter: 2015Q2

REPORT INFORMATION
  Report Type: Spontaneous
  Country: AR (occurrence: AR)
  Receive Date: 20150317
  Receipt Date: 20150408
  Transmission Date: 20150821
  Serious: Yes (Death, Hospitalization, Other)
  Sender: FDA-Public Use
  Company Number: AR-ALEXION PHARMACEUTICALS INC.-A201500896

PATIENT

DRUGS (1)
  1. SOLIRIS [Suspect]
     Active Substance: ECULIZUMAB
     Indication: PAROXYSMAL NOCTURNAL HAEMOGLOBINURIA
     Dosage: 900 MG, Q2W
     Route: 042
     Dates: start: 20130510, end: 20150305

REACTIONS (4)
  - Acute kidney injury [Fatal]
  - Hypotension [Unknown]
  - Multi-organ failure [Fatal]
  - Hepatic function abnormal [Fatal]

NARRATIVE: CASE EVENT DATE: 201503
